FAERS Safety Report 8850675 (Version 1)
Quarter: 2012Q4

REPORT INFORMATION
  Report Type: 
  Country: US (occurrence: US)
  Receive Date: 20121019
  Receipt Date: 20121019
  Transmission Date: 20130627
  Serious: No
  Sender: FDA-Public Use
  Company Number: US-ASTRAZENECA-2012SE79451

PATIENT
  Age: 41 Year
  Sex: Female
  Weight: 79.4 kg

DRUGS (3)
  1. NEXIUM [Suspect]
     Route: 048
  2. SEROQUEL [Suspect]
     Route: 048
  3. INVEGA [Concomitant]

REACTIONS (2)
  - Dyspepsia [Unknown]
  - Drug dose omission [Unknown]
